FAERS Safety Report 25237632 (Version 1)
Quarter: 2025Q2

REPORT INFORMATION
  Report Type: Spontaneous
  Country: JP (occurrence: JP)
  Receive Date: 20250425
  Receipt Date: 20250425
  Transmission Date: 20250716
  Serious: Yes (Death, Disabling, Other)
  Sender: GLAXOSMITHKLINE
  Company Number: JP-GSK-JP2025JPN048062

PATIENT

DRUGS (29)
  1. MEPOLIZUMAB [Suspect]
     Active Substance: MEPOLIZUMAB
     Indication: Eosinophilic granulomatosis with polyangiitis
     Dosage: 300 MG, Q4W
     Dates: start: 20190423, end: 20190813
  2. MEPOLIZUMAB [Suspect]
     Active Substance: MEPOLIZUMAB
     Dosage: 300 MG, Q6W
     Dates: start: 20190924, end: 20190924
  3. MEPOLIZUMAB [Suspect]
     Active Substance: MEPOLIZUMAB
     Dosage: 300 MG, Q4W
     Dates: start: 20191023, end: 20191217
  4. MEPOLIZUMAB [Suspect]
     Active Substance: MEPOLIZUMAB
     Dosage: 300 MG, Q5W
     Dates: start: 20200123, end: 20200123
  5. MEPOLIZUMAB [Suspect]
     Active Substance: MEPOLIZUMAB
     Dosage: 300 MG, Q4W
     Dates: start: 20200218, end: 20200512
  6. PREDONINE [Concomitant]
     Active Substance: PREDNISOLONE
     Indication: Eosinophilic granulomatosis with polyangiitis
     Route: 048
     Dates: end: 20190626
  7. PREDONINE [Concomitant]
     Active Substance: PREDNISOLONE
     Route: 048
     Dates: start: 20190627, end: 20200122
  8. PREDONINE [Concomitant]
     Active Substance: PREDNISOLONE
     Route: 048
     Dates: start: 20200123, end: 20200205
  9. PREDONINE [Concomitant]
     Active Substance: PREDNISOLONE
     Route: 048
     Dates: start: 20200206, end: 20200308
  10. PREDONINE [Concomitant]
     Active Substance: PREDNISOLONE
     Route: 048
     Dates: start: 20200309, end: 20200316
  11. PREDONINE [Concomitant]
     Active Substance: PREDNISOLONE
     Route: 048
     Dates: start: 20200317, end: 20200401
  12. PREDONINE [Concomitant]
     Active Substance: PREDNISOLONE
     Route: 048
     Dates: start: 20200402, end: 20200513
  13. PREDONINE [Concomitant]
     Active Substance: PREDNISOLONE
     Route: 048
     Dates: start: 20200514, end: 20200610
  14. PREDONINE [Concomitant]
     Active Substance: PREDNISOLONE
     Route: 048
     Dates: start: 20200611, end: 20200617
  15. NEXIUM [Concomitant]
     Active Substance: ESOMEPRAZOLE MAGNESIUM
     Indication: Prophylaxis against gastrointestinal ulcer
  16. FUROSEMIDE [Concomitant]
     Active Substance: FUROSEMIDE
  17. VFEND [Concomitant]
     Active Substance: VORICONAZOLE
  18. BONALON [Concomitant]
     Active Substance: ALENDRONATE SODIUM
  19. TULOBUTEROL [Concomitant]
     Active Substance: TULOBUTEROL
  20. ROZEREM [Concomitant]
     Active Substance: RAMELTEON
  21. MAGNESIUM OXIDE [Concomitant]
     Active Substance: MAGNESIUM OXIDE
  22. SULFAMERAZINE\TRIMETHOPRIM [Concomitant]
     Active Substance: SULFAMERAZINE\TRIMETHOPRIM
     Indication: Antifungal prophylaxis
  23. MEROPENEM [Concomitant]
     Active Substance: MEROPENEM
  24. LEVOFLOXACIN [Concomitant]
     Active Substance: LEVOFLOXACIN
  25. ALFACALCIDOL [Concomitant]
     Active Substance: ALFACALCIDOL
  26. ERYTHROCIN [Concomitant]
     Active Substance: ERYTHROMYCIN LACTOBIONATE
  27. CEFTRIAXONE SODIUM [Concomitant]
     Active Substance: CEFTRIAXONE SODIUM
     Indication: Pneumonia aspiration
     Dates: start: 20200427, end: 20200514
  28. VANCOMYCIN HYDROCHLORIDE [Concomitant]
     Active Substance: VANCOMYCIN HYDROCHLORIDE
     Indication: Pneumonia aspiration
     Dates: start: 20200427, end: 20200514
  29. CEFOZOPRAN HYDROCHLORIDE [Concomitant]
     Active Substance: CEFOZOPRAN HYDROCHLORIDE
     Indication: Pneumonia aspiration
     Dates: start: 20200618, end: 20200618

REACTIONS (1)
  - Pulmonary artery thrombosis [Fatal]

NARRATIVE: CASE EVENT DATE: 20200618
